FAERS Safety Report 10314914 (Version 2)
Quarter: 2014Q3

REPORT INFORMATION
  Report Type: Spontaneous
  Country: US (occurrence: US)
  Receive Date: 20140718
  Receipt Date: 20140821
  Transmission Date: 20150326
  Serious: No
  Sender: FDA-Public Use
  Company Number: US-B.I. PHARMACEUTICALS,INC./RIDGEFIELD-2014-BI-32319BP

PATIENT
  Age: 0 Year
  Sex: Male
  Weight: 86 kg

DRUGS (2)
  1. COMBIVENT [Suspect]
     Active Substance: ALBUTEROL SULFATE\IPRATROPIUM BROMIDE
     Indication: ASTHMA
     Dosage: STRENGTH: 20 MCG / 100 MCG;
     Route: 055
     Dates: start: 2012
  2. LOTREL [Concomitant]
     Active Substance: AMLODIPINE BESYLATE\BENAZEPRIL HYDROCHLORIDE
     Indication: HYPERTENSION
     Dosage: STRENGTH: 10MG/20MG; DAILY DOSE: 10MG/20MG
     Route: 048
     Dates: start: 1992

REACTIONS (3)
  - Product quality issue [Unknown]
  - Off label use [Unknown]
  - Finger amputation [Recovered/Resolved]

NARRATIVE: CASE EVENT DATE: 2012
